FAERS Safety Report 23582591 (Version 1)
Quarter: 2024Q1

REPORT INFORMATION
  Report Type: Report from Study
  Country: US (occurrence: US)
  Receive Date: 20240229
  Receipt Date: 20240229
  Transmission Date: 20240409
  Serious: Yes (Hospitalization)
  Sender: FDA-Public Use
  Company Number: US-ABBVIE-5546699

PATIENT
  Age: 65 Year
  Sex: Male
  Weight: 93 kg

DRUGS (9)
  1. RINVOQ [Suspect]
     Active Substance: UPADACITINIB
     Indication: Rheumatoid arthritis
     Dosage: FORM STRENGTH: 15 MILLIGRAMS
     Route: 048
     Dates: start: 20221028, end: 20231123
  2. TYLENOL [Concomitant]
     Active Substance: ACETAMINOPHEN
     Indication: Pain
     Dosage: TAKE 1 TABLET BY MOUTH EVERY 6 HOURS AS NEEDED?FORM STRENGTH: 500 MILLIGRAMS
     Route: 048
  3. ASPIRIN [Concomitant]
     Active Substance: ASPIRIN
     Indication: Product used for unknown indication
     Dosage: TAKE 1 TABLET BY MOUTH DAILY?FORM STRENGTH: 81 MILLIGRAMS
     Route: 048
  4. LOVENOX [Concomitant]
     Active Substance: ENOXAPARIN SODIUM
     Indication: Portal vein thrombosis
     Dosage: INJECT 1 ML INTO THE SKIN EVERY 12 HOURS FOR 36 DAYS?FORM STRENGTH: 100 MILLIGRAM/MILLILITERS
  5. VIAGRA [Concomitant]
     Active Substance: SILDENAFIL CITRATE
     Indication: Erectile dysfunction
     Dosage: TAKE 1 TABLET BY MOUTH DAILY AS NEEDED?FORM STRENGTH: 50 MILLIGRAMS
     Route: 048
  6. LIDOCAINE [Concomitant]
     Active Substance: LIDOCAINE
     Indication: Back pain
     Dosage: 4 % PATCH,  PLACE 1 PATCH ONTO THE SKIN EVERY 24 HOURS
  7. TEMOVATE [Concomitant]
     Active Substance: CLOBETASOL PROPIONATE
     Indication: Product used for unknown indication
     Dosage: APPLY TO AFFECTED AREAS ON HANDS, FEET, ARMS, LEGS BID X 2 WEEKS, TAKE ONE WEEK OFF?FORM STRENGTH...
  8. ZESTRIL [Concomitant]
     Active Substance: LISINOPRIL
     Indication: Product used for unknown indication
     Dosage: TAKE ONE TABLET BY MOUTH DAILY?FORM STRENGTH: 10 MILLIGRAMS
     Route: 048
  9. PRINIVIL [Concomitant]
     Active Substance: LISINOPRIL
     Indication: Product used for unknown indication
     Dosage: TAKE ONE TABLET BY MOUTH DAILY?FORM STRENGTH: 10 MILLIGRAMS
     Route: 048

REACTIONS (4)
  - Portal vein thrombosis [Recovering/Resolving]
  - Chills [Unknown]
  - Diverticulitis [Unknown]
  - Pyrexia [Unknown]

NARRATIVE: CASE EVENT DATE: 20231122
